FAERS Safety Report 8435422-5 (Version None)
Quarter: 2012Q2

REPORT INFORMATION
  Report Type: 
  Country: None (occurrence: None)
  Receive Date: 20120614
  Receipt Date: 20120604
  Transmission Date: 20120825
  Serious: Yes (Hospitalization)
  Sender: FDA-Public Use
  Company Number: CA-BRISTOL-MYERS SQUIBB COMPANY-16670135

PATIENT
  Age: 51 Year
  Sex: Female

DRUGS (2)
  1. YERVOY [Suspect]
     Indication: METASTATIC MALIGNANT MELANOMA
     Dosage: 1 INF
     Route: 042
     Dates: start: 20120430
  2. SYNTHROID [Concomitant]

REACTIONS (2)
  - NEOPLASM MALIGNANT [None]
  - PAIN [None]
